FAERS Safety Report 6646081-6 (Version None)
Quarter: 2010Q1

REPORT INFORMATION
  Report Type: 
  Country: None (occurrence: None)
  Receive Date: 20100323
  Receipt Date: 20100220
  Transmission Date: 20100710
  Serious: Yes (Hospitalization, Other)
  Sender: FDA-Public Use
  Company Number: PHEH2009US16302

PATIENT
  Sex: Female

DRUGS (3)
  1. EXJADE [Suspect]
     Indication: MYELODYSPLASTIC SYNDROME
     Dosage: 1500 MG, QD
     Route: 048
     Dates: start: 20081201
  2. EXJADE [Suspect]
     Indication: IRON OVERLOAD
  3. AMBIEN [Concomitant]
     Indication: INSOMNIA
     Dosage: 10 MG, PRN

REACTIONS (6)
  - GENITAL ULCERATION [None]
  - INFECTION [None]
  - NEUTROPENIA [None]
  - PNEUMONIA [None]
  - SERUM FERRITIN INCREASED [None]
  - STOMATITIS [None]
